FAERS Safety Report 13967813 (Version 3)
Quarter: 2017Q4

REPORT INFORMATION
  Report Type: Report from Study
  Country: US (occurrence: US)
  Receive Date: 20170914
  Receipt Date: 20171101
  Transmission Date: 20180320
  Serious: Yes (Hospitalization)
  Sender: FDA-Public Use
  Company Number: US-GILEAD-2017-0293164

PATIENT
  Age: 80 Year
  Sex: Female

DRUGS (13)
  1. DIGOXIN. [Concomitant]
     Active Substance: DIGOXIN
  2. LIPITOR [Concomitant]
     Active Substance: ATORVASTATIN CALCIUM
  3. NEXIUM [Concomitant]
     Active Substance: ESOMEPRAZOLE MAGNESIUM
  4. SINGULA [Concomitant]
  5. LASIX [Concomitant]
     Active Substance: FUROSEMIDE
  6. AMBRISENTAN [Suspect]
     Active Substance: AMBRISENTAN
     Indication: PRODUCT USED FOR UNKNOWN INDICATION
     Dosage: 5 MG, UNK
     Route: 065
     Dates: start: 20160804
  7. ADCIRCA [Concomitant]
     Active Substance: TADALAFIL
  8. MAG OXIDE [Concomitant]
     Active Substance: MAGNESIUM OXIDE
  9. METOPROLOL. [Concomitant]
     Active Substance: METOPROLOL
  10. POTASSIUM [Concomitant]
     Active Substance: POTASSIUM
  11. OXYGEN. [Concomitant]
     Active Substance: OXYGEN
  12. TRAZODONE [Concomitant]
     Active Substance: TRAZODONE HYDROCHLORIDE
  13. ASA [Concomitant]
     Active Substance: ASPIRIN

REACTIONS (4)
  - Hypomagnesaemia [Recovering/Resolving]
  - Supraventricular tachycardia [Recovered/Resolved]
  - Hypokalaemia [Recovering/Resolving]
  - Atrial tachycardia [Recovered/Resolved]
